FAERS Safety Report 6044460-1 (Version None)
Quarter: 2009Q1

REPORT INFORMATION
  Report Type: 
  Country: None (occurrence: None)
  Receive Date: 20090120
  Receipt Date: 20090114
  Transmission Date: 20090719
  Serious: Yes (Other)
  Sender: FDA-Public Use
  Company Number: DE-AVENTIS-200910139DE

PATIENT
  Age: 60 Year
  Sex: Male

DRUGS (1)
  1. BATRAFEN CREME [Suspect]
     Indication: DRUG USE FOR UNKNOWN INDICATION
     Dosage: DOSE: NOT REPORTED
     Route: 062
     Dates: start: 20090113, end: 20090113

REACTIONS (1)
  - SYNCOPE [None]
